FAERS Safety Report 19546453 (Version 1)
Quarter: 2021Q3

REPORT INFORMATION
  Report Type: Spontaneous
  Country: TR (occurrence: TR)
  Receive Date: 20210714
  Receipt Date: 20210714
  Transmission Date: 20211014
  Serious: Yes (Other)
  Sender: FDA-Public Use
  Company Number: TR-SUN PHARMACEUTICAL INDUSTRIES LTD-2021RR-304363

PATIENT
  Age: 13 Year
  Sex: Male

DRUGS (2)
  1. OLANZAPINE. [Suspect]
     Active Substance: OLANZAPINE
     Dosage: 15 MILLIGRAM, DAILY
     Route: 065
  2. OLANZAPINE. [Suspect]
     Active Substance: OLANZAPINE
     Indication: AUTISM SPECTRUM DISORDER
     Dosage: 10 MILLIGRAM, DAILY
     Route: 065

REACTIONS (6)
  - Agitation [Unknown]
  - Polydipsia [Unknown]
  - Blood sodium decreased [Unknown]
  - Polyuria [Unknown]
  - Therapeutic product effect incomplete [Unknown]
  - Seizure [Unknown]
